FAERS Safety Report 13197759 (Version 16)
Quarter: 2019Q4

REPORT INFORMATION
  Report Type: Spontaneous
  Country: US (occurrence: US)
  Receive Date: 20170208
  Receipt Date: 20191002
  Transmission Date: 20200122
  Serious: Yes (Hospitalization, Other)
  Sender: FDA-Public Use
  Company Number: US-PFIZER INC-2017056058

PATIENT
  Age: 4 Year
  Sex: Male

DRUGS (52)
  1. KEPPRA [Concomitant]
     Active Substance: LEVETIRACETAM
     Dosage: UNK
     Dates: start: 201103
  2. ONFI [Concomitant]
     Active Substance: CLOBAZAM
     Indication: EPILEPSY
     Dosage: 5 MG, 2X/DAY
     Route: 048
  3. LEVOXYL [Concomitant]
     Active Substance: LEVOTHYROXINE SODIUM
     Dosage: 37.5 MG, DAILY
  4. EPIDIOLEX ODT [Concomitant]
     Indication: EPILEPSY
     Dosage: 140 MG, 2X/DAY
     Route: 048
  5. EPIDIOLEX ODT [Concomitant]
     Dosage: 2 ML, UNK
  6. DILANTIN [Suspect]
     Active Substance: PHENYTOIN
     Dosage: 20 MG/KG, UNK
     Route: 042
     Dates: start: 20110212
  7. POTASSIUM CITRATE-CITRIC ACID [Concomitant]
     Active Substance: CITRIC ACID MONOHYDRATE\POTASSIUM CITRATE
     Dosage: 3/4 PACKET, DAILY
     Route: 048
  8. POTASSIUM CHLORIDE. [Concomitant]
     Active Substance: POTASSIUM CHLORIDE
     Dosage: 11.3 ML, 2X/DAY
  9. ISOFLURANE. [Concomitant]
     Active Substance: ISOFLURANE
     Indication: SEIZURE
     Dosage: UNK
     Dates: start: 201102, end: 201103
  10. LAMOTRIGINE. [Concomitant]
     Active Substance: LAMOTRIGINE
     Dosage: UNK
  11. CLORAZEPATE [Concomitant]
     Active Substance: CLORAZEPATE DIPOTASSIUM
     Indication: SEIZURE CLUSTER
     Dosage: 1.8 MG, AS NEEDED (PRN)
  12. DIASTAT [Concomitant]
     Active Substance: DIAZEPAM
     Dosage: UNK (1 TUBE, RECTALLY)
  13. PHENOBARBITAL. [Concomitant]
     Active Substance: PHENOBARBITAL
     Indication: SEIZURE
     Dosage: UNK
     Dates: start: 201102, end: 201103
  14. VALIUM [Concomitant]
     Active Substance: DIAZEPAM
     Indication: SEIZURE
     Dosage: UNK
     Dates: start: 201102, end: 201103
  15. PHENYTOIN. [Suspect]
     Active Substance: PHENYTOIN
     Dosage: UNK
  16. ONFI [Concomitant]
     Active Substance: CLOBAZAM
     Indication: SEIZURE
     Dosage: 5 MG, DAILY
     Route: 048
  17. OXYGEN. [Concomitant]
     Active Substance: OXYGEN
     Indication: EPILEPSY
     Dosage: UNK, AS NEEDED
     Dates: start: 2011
  18. DIAZEPAM. [Concomitant]
     Active Substance: DIAZEPAM
     Dosage: 10 MG, UNK
  19. LEVETIRACETAM. [Concomitant]
     Active Substance: LEVETIRACETAM
     Dosage: UNK
  20. DILANTIN [Suspect]
     Active Substance: PHENYTOIN
     Indication: FEBRILE CONVULSION
     Dosage: 25 MG, 3X/DAY
     Dates: end: 20110307
  21. DILANTIN [Suspect]
     Active Substance: PHENYTOIN
     Dosage: 250 MG, UNK
     Route: 042
     Dates: start: 20110208
  22. ONFI [Concomitant]
     Active Substance: CLOBAZAM
     Indication: SEIZURE CLUSTER
     Dosage: 10 MG, 3X/DAY
     Route: 048
  23. ONFI [Concomitant]
     Active Substance: CLOBAZAM
     Dosage: UNK, 1X/DAY (5 MG IN THE MORNING, 10 MG IN THE EVENING)
     Route: 048
  24. LAMICTAL ODT [Concomitant]
     Active Substance: LAMOTRIGINE
     Indication: EPILEPSY
     Dosage: UNK
     Route: 048
     Dates: start: 201108
  25. DIASTAT [Concomitant]
     Active Substance: DIAZEPAM
     Indication: EPILEPSY
     Dosage: 10 MG, AS NEEDED (PRN) PER RECTUM
  26. SYNTHROID [Concomitant]
     Active Substance: LEVOTHYROXINE SODIUM
     Dosage: 37.5 UG, 1X/DAY (Q AM)
  27. TOPAMAX [Concomitant]
     Active Substance: TOPIRAMATE
     Indication: SEIZURE
     Dosage: UNK
     Dates: start: 201103, end: 201204
  28. DEPAKOTE [Concomitant]
     Active Substance: DIVALPROEX SODIUM
     Indication: SEIZURE
     Dosage: UNK
     Dates: start: 201102
  29. DILANTIN [Suspect]
     Active Substance: PHENYTOIN
     Indication: SEIZURE
     Dosage: UNK
     Route: 048
  30. KEPPRA [Concomitant]
     Active Substance: LEVETIRACETAM
     Indication: EPILEPSY
     Dosage: 3.5 ML, 2X/DAY
     Route: 048
  31. KEPPRA [Concomitant]
     Active Substance: LEVETIRACETAM
     Indication: SEIZURE CLUSTER
     Dosage: 3.6 ML, 2X/DAY
     Route: 048
  32. LEVOXYL [Concomitant]
     Active Substance: LEVOTHYROXINE SODIUM
     Dosage: 25 UG, DAILY
     Route: 048
  33. EPIDIOLEX ODT [Concomitant]
     Indication: SEIZURE
     Dosage: UNK
     Route: 048
     Dates: start: 201702
  34. CEREBYX [Concomitant]
     Active Substance: FOSPHENYTOIN SODIUM
     Indication: SEIZURE
     Dosage: UNK
     Dates: start: 201102, end: 201103
  35. LEVOTHYROXIN [Concomitant]
     Active Substance: LEVOTHYROXINE
     Dosage: UNK, 1X/DAY (HALF TABLET)
     Route: 048
  36. DILANTIN [Suspect]
     Active Substance: PHENYTOIN
     Dosage: 25 MG, 2X/DAY
     Dates: start: 20110308, end: 20110308
  37. DILANTIN [Suspect]
     Active Substance: PHENYTOIN
     Dosage: UNK
  38. ONFI [Concomitant]
     Active Substance: CLOBAZAM
     Dosage: 10 MG, 1X/DAY
     Route: 048
  39. ONFI [Concomitant]
     Active Substance: CLOBAZAM
     Dosage: UNK
     Dates: start: 201208
  40. LAMICTAL ODT [Concomitant]
     Active Substance: LAMOTRIGINE
     Indication: SEIZURE CLUSTER
     Dosage: 100 MG, 2X/DAY
     Route: 048
  41. DIASTAT [Concomitant]
     Active Substance: DIAZEPAM
     Dosage: UNK, AS NEEDED (SEIZURE EMERGENCY)
     Dates: start: 2011
  42. DUOCAL [Concomitant]
     Dosage: UNK, 3X/DAY
  43. ATIVAN [Concomitant]
     Active Substance: LORAZEPAM
     Indication: SEIZURE
     Dosage: UNK
     Dates: start: 201102, end: 201103
  44. VIMPAT [Concomitant]
     Active Substance: LACOSAMIDE
     Indication: SEIZURE
     Dosage: UNK
     Dates: start: 201102
  45. DILANTIN [Suspect]
     Active Substance: PHENYTOIN
     Dosage: 25 MG, 1X/DAY
     Dates: start: 20110309, end: 20110309
  46. KEPPRA [Concomitant]
     Active Substance: LEVETIRACETAM
     Indication: SEIZURE
     Dosage: 3.4 ML, 2X/DAY
  47. LAMICTAL ODT [Concomitant]
     Active Substance: LAMOTRIGINE
     Indication: SEIZURE
  48. DIASTAT [Concomitant]
     Active Substance: DIAZEPAM
     Indication: SEIZURE
     Dosage: 7.5 MG, AS NEEDED (PRN) PER RECTUM
  49. DIASTAT [Concomitant]
     Active Substance: DIAZEPAM
     Dosage: UNK
     Dates: start: 201102, end: 2014
  50. LEVOXYL [Concomitant]
     Active Substance: LEVOTHYROXINE SODIUM
     Dosage: 75 UG, UNK
  51. OXYGEN. [Concomitant]
     Active Substance: OXYGEN
     Dosage: 10 L, UNK
  52. CLOBAZAM. [Concomitant]
     Active Substance: CLOBAZAM
     Dosage: UNK

REACTIONS (11)
  - Cerebellar ataxia [Not Recovered/Not Resolved]
  - Speech disorder [Not Recovered/Not Resolved]
  - Encephalitis viral [Unknown]
  - Cognitive disorder [Not Recovered/Not Resolved]
  - Drug reaction with eosinophilia and systemic symptoms [Recovering/Resolving]
  - Intellectual disability [Unknown]
  - Cerebral ataxia [Unknown]
  - Respiratory syncytial virus infection [Unknown]
  - Loss of personal independence in daily activities [Not Recovered/Not Resolved]
  - Cerebellar atrophy [Not Recovered/Not Resolved]
  - Language disorder [Recovering/Resolving]

NARRATIVE: CASE EVENT DATE: 201102
